FAERS Safety Report 5778184-2 (Version None)
Quarter: 2008Q2

REPORT INFORMATION
  Report Type: 
  Country: None (occurrence: None)
  Receive Date: 20080619
  Receipt Date: 20080418
  Transmission Date: 20081010
  Serious: No
  Sender: FDA-Public Use
  Company Number: US-BAYER-200820967NA

PATIENT
  Age: 50 Year
  Sex: Female

DRUGS (3)
  1. CLIMARA [Suspect]
     Indication: HORMONE REPLACEMENT THERAPY
     Route: 062
  2. ANTI - HYPERTENSIVE NOS [Concomitant]
     Indication: HYPERTENSION
  3. ANXIETY DRUG NOS [Concomitant]
     Indication: ANXIETY

REACTIONS (1)
  - APPLICATION SITE DRYNESS [None]
